FAERS Safety Report 20207551 (Version 1)
Quarter: 2021Q4

REPORT INFORMATION
  Report Type: Spontaneous
  Country: CA (occurrence: CA)
  Receive Date: 20211220
  Receipt Date: 20211220
  Transmission Date: 20220304
  Serious: Yes (Death)
  Sender: FDA-Public Use
  Company Number: CA-PFIZER INC-2021655862

PATIENT
  Age: 82 Year
  Sex: Female
  Weight: 79 kg

DRUGS (2)
  1. SULFASALAZINE [Suspect]
     Active Substance: SULFASALAZINE
     Dosage: DOSAGE INFORMATION NOT AVAILABLE
  2. LYRICA [Suspect]
     Active Substance: PREGABALIN
     Dosage: DOSAGE INFORMATION NOT AVAILABLE

REACTIONS (3)
  - Death [Fatal]
  - Pain in extremity [Unknown]
  - Arthralgia [Unknown]

NARRATIVE: CASE EVENT DATE: 20210918
